FAERS Safety Report 4496180-2 (Version None)
Quarter: 2004Q4

REPORT INFORMATION
  Report Type: 
  Country: None (occurrence: None)
  Receive Date: 20041102
  Receipt Date: 20041015
  Transmission Date: 20050328
  Serious: Yes (Hospitalization)
  Sender: FDA-Public Use
  Company Number: 239851

PATIENT
  Sex: 0
  Weight: 106 kg

DRUGS (1)
  1. NOVOSEVEN [Suspect]
     Indication: VON WILLEBRAND'S DISEASE
     Dosage: INTRAVENOUS
     Route: 042

REACTIONS (2)
  - CELLULITIS [None]
  - PHLEBITIS [None]
